FAERS Safety Report 8582859-X (Version None)
Quarter: 2012Q3

REPORT INFORMATION
  Report Type: 
  Country: None (occurrence: None)
  Receive Date: 20120809
  Receipt Date: 20120731
  Transmission Date: 20120928
  Serious: Yes (Other)
  Sender: FDA-Public Use
  Company Number: PR-ABBOTT-12P-131-0954801-00

PATIENT
  Sex: Female
  Weight: 72.186 kg

DRUGS (11)
  1. LYRICA [Concomitant]
     Indication: FIBROMYALGIA
     Route: 048
  2. LODINE [Concomitant]
     Indication: SPINAL FRACTURE
  3. PROSOM [Concomitant]
     Indication: FIBROMYALGIA
     Dosage: 1 TABLET AT BEDTIME
     Route: 048
  4. SKELAXIN [Concomitant]
     Indication: INTERVERTEBRAL DISC PROTRUSION
     Route: 048
  5. SKELAXIN [Concomitant]
     Indication: SPINAL FRACTURE
  6. WELLBUTRIN XL [Concomitant]
     Indication: FIBROMYALGIA
     Route: 048
  7. CELEBREX [Concomitant]
     Indication: SPINAL FRACTURE
  8. CYMBALTA [Concomitant]
     Indication: FIBROMYALGIA
     Dosage: 60 MG O 30 MG DAILY
     Route: 048
  9. HUMIRA [Suspect]
     Indication: RHEUMATOID ARTHRITIS
     Route: 058
     Dates: end: 20120601
  10. CELEBREX [Concomitant]
     Indication: INTERVERTEBRAL DISC PROTRUSION
     Route: 048
  11. LODINE [Concomitant]
     Indication: INTERVERTEBRAL DISC PROTRUSION
     Dosage: 1 TABLET EVERY 12 HOURS AS NEEDED
     Route: 048

REACTIONS (4)
  - THYROID NEOPLASM [None]
  - LUNG NEOPLASM [None]
  - LIVER DISORDER [None]
  - FALL [None]
